FAERS Safety Report 6020808-9 (Version None)
Quarter: 2008Q4

REPORT INFORMATION
  Report Type: 
  Country: None (occurrence: None)
  Receive Date: 20081229
  Receipt Date: 20081218
  Transmission Date: 20090506
  Serious: Yes (Death)
  Sender: FDA-Public Use
  Company Number: US-JNJFOC-20081206432

PATIENT
  Age: 34 Year
  Sex: Male

DRUGS (11)
  1. HALOPERIDOL [Suspect]
     Indication: SUICIDE ATTEMPT
     Route: 048
  2. COLCHICINE [Suspect]
     Indication: SUICIDE ATTEMPT
     Route: 048
  3. ATENOLOL [Suspect]
     Indication: SUICIDE ATTEMPT
     Route: 048
  4. PHENYTOIN [Suspect]
     Indication: SUICIDE ATTEMPT
  5. FENOFIBRATE [Suspect]
     Indication: SUICIDE ATTEMPT
     Route: 048
  6. TRAZODONE [Suspect]
     Indication: SUICIDE ATTEMPT
     Route: 048
  7. OXYCODONE [Suspect]
     Indication: SUICIDE ATTEMPT
  8. GEMFIBROZIL [Suspect]
     Indication: SUICIDE ATTEMPT
     Route: 048
  9. MIRTAZAPINE [Suspect]
     Indication: SUICIDE ATTEMPT
     Route: 048
  10. INDOMETHACIN [Suspect]
     Indication: SUICIDE ATTEMPT
     Route: 048
  11. LOSARTAN [Suspect]
     Indication: SUICIDE ATTEMPT
     Route: 048

REACTIONS (1)
  - DRUG TOXICITY [None]
